FAERS Safety Report 7287823-9 (Version None)
Quarter: 2011Q1

REPORT INFORMATION
  Report Type: 
  Country: None (occurrence: None)
  Receive Date: 20110211
  Receipt Date: 20110208
  Transmission Date: 20110831
  Serious: Yes (Other)
  Sender: FDA-Public Use
  Company Number: US-PFIZER INC-2011028551

PATIENT
  Sex: Female
  Weight: 61.224 kg

DRUGS (2)
  1. XALATAN [Concomitant]
     Indication: GLAUCOMA
     Dosage: UNK
  2. DETROL LA [Suspect]
     Indication: URGE INCONTINENCE
     Dosage: 4 MG, DAILY
     Route: 048
     Dates: start: 20100801

REACTIONS (1)
  - CONSTIPATION [None]
